FAERS Safety Report 5095324-1 (Version None)
Quarter: 2006Q3

REPORT INFORMATION
  Report Type: 
  Country: None (occurrence: None)
  Receive Date: 20060901
  Receipt Date: 20050503
  Transmission Date: 20061208
  Serious: Yes (Other)
  Sender: FDA-Public Use
  Company Number: US-GLAXOSMITHKLINE-A0558207A

PATIENT
  Age: 53 Year
  Sex: Female
  Weight: 124.5 kg

DRUGS (6)
  1. PAXIL [Suspect]
     Indication: ANXIETY
     Dosage: 20MG THREE TIMES PER DAY
     Route: 048
     Dates: start: 19991201
  2. ESTRADIOL INJ [Concomitant]
  3. ZOCOR [Concomitant]
  4. VERAPAMIL [Concomitant]
  5. ACIPHEX [Concomitant]
  6. TRIAMTERENE AND HYDROCHLOROTHIAZIDE [Concomitant]

REACTIONS (12)
  - AMNESIA [None]
  - CRYING [None]
  - DEPRESSION [None]
  - DIARRHOEA [None]
  - DRUG WITHDRAWAL SYNDROME [None]
  - FATIGUE [None]
  - HYPERHIDROSIS [None]
  - MUSCLE SPASMS [None]
  - NAUSEA [None]
  - PARAESTHESIA [None]
  - SUICIDAL IDEATION [None]
  - WEIGHT INCREASED [None]
